FAERS Safety Report 4531781-4 (Version None)
Quarter: 2004Q4

REPORT INFORMATION
  Report Type: 
  Country: None (occurrence: None)
  Receive Date: 20041220
  Receipt Date: 20041209
  Transmission Date: 20050328
  Serious: Yes (Other)
  Sender: FDA-Public Use
  Company Number: PT-JNJFOC-20041202859

PATIENT
  Sex: Female

DRUGS (4)
  1. TRAMAL RETARD [Suspect]
     Indication: PAIN
     Route: 049
  2. CLOXAZOLAM [Concomitant]
     Route: 049
  3. SIMVASTATINE [Concomitant]
     Route: 049
  4. PARACETAMOL [Concomitant]
     Route: 049

REACTIONS (4)
  - SEDATION [None]
  - SOMNOLENCE [None]
  - VISION BLURRED [None]
  - VISUAL ACUITY REDUCED [None]
